FAERS Safety Report 6494627-3 (Version None)
Quarter: 2009Q4

REPORT INFORMATION
  Report Type: 
  Country: None (occurrence: None)
  Receive Date: 20091214
  Receipt Date: 20090317
  Transmission Date: 20100525
  Serious: No
  Sender: FDA-Public Use
  Company Number: US-BRISTOL-MYERS SQUIBB COMPANY-14538599

PATIENT
  Age: 29 Year
  Sex: Female

DRUGS (4)
  1. ABILIFY [Suspect]
     Indication: BIPOLAR DISORDER
     Dates: start: 20081101
  2. HYDROXYZINE [Suspect]
     Indication: ANXIETY
  3. LAMICTAL [Concomitant]
     Dosage: MAINTAINED AT 100MG BID AFTER INITIAL TITRATION DURING THE FIRST MONTH.
     Dates: start: 20080401
  4. VESICARE [Concomitant]

REACTIONS (2)
  - CATARACT [None]
  - VISION BLURRED [None]
